FAERS Safety Report 16804223 (Version 4)
Quarter: 2019Q4

REPORT INFORMATION
  Report Type: Report from Study
  Country: None (occurrence: US)
  Receive Date: 20190913
  Receipt Date: 20191211
  Transmission Date: 20200122
  Serious: Yes (Other)
  Sender: FDA-Public Use
  Company Number: US-ABBVIE-19K-163-2848925-00

PATIENT
  Age: 67 Year
  Sex: Female

DRUGS (2)
  1. HUMIRA [Suspect]
     Active Substance: ADALIMUMAB
     Indication: CROHN^S DISEASE
     Dosage: CITRATE FREE
     Route: 058
     Dates: start: 201907
  2. HUMIRA [Suspect]
     Active Substance: ADALIMUMAB
     Indication: CROHN^S DISEASE
     Route: 058
     Dates: start: 20190605, end: 2019

REACTIONS (26)
  - Pain in extremity [Not Recovered/Not Resolved]
  - Urinary tract infection [Unknown]
  - Bladder pain [Not Recovered/Not Resolved]
  - Decreased appetite [Recovering/Resolving]
  - Loss of personal independence in daily activities [Recovering/Resolving]
  - Depressed mood [Not Recovered/Not Resolved]
  - Urinary tract infection [Unknown]
  - Gastroenteritis viral [Recovered/Resolved]
  - Fear [Recovering/Resolving]
  - Insomnia [Recovering/Resolving]
  - Nausea [Recovering/Resolving]
  - Secretion discharge [Unknown]
  - Anxiety [Recovering/Resolving]
  - Diarrhoea [Recovering/Resolving]
  - Intestinal obstruction [Recovering/Resolving]
  - Abdominal distension [Unknown]
  - Skin exfoliation [Unknown]
  - Erythema [Unknown]
  - Abdominal pain upper [Recovering/Resolving]
  - Nasopharyngitis [Unknown]
  - Fatigue [Recovering/Resolving]
  - Abnormal loss of weight [Recovering/Resolving]
  - Headache [Recovering/Resolving]
  - Blister [Not Recovered/Not Resolved]
  - Productive cough [Unknown]
  - Therapeutic product effect decreased [Unknown]

NARRATIVE: CASE EVENT DATE: 2019
